FAERS Safety Report 20776698 (Version 3)
Quarter: 2022Q3

REPORT INFORMATION
  Report Type: Spontaneous
  Country: US (occurrence: US)
  Receive Date: 20220502
  Receipt Date: 20220803
  Transmission Date: 20221027
  Serious: Yes (Other)
  Sender: FDA-Public Use
  Company Number: US-BRISTOL-MYERS SQUIBB COMPANY-2022-024522

PATIENT
  Age: 58 Year
  Sex: Male
  Weight: 50.2 kg

DRUGS (2)
  1. ABECMA [Suspect]
     Active Substance: IDECABTAGENE VICLEUCEL
     Indication: Plasma cell myeloma
     Route: 065
     Dates: start: 20220223
  2. ABECMA [Suspect]
     Active Substance: IDECABTAGENE VICLEUCEL

REACTIONS (4)
  - Acute kidney injury [Unknown]
  - Fatigue [Unknown]
  - Immune effector cell-associated neurotoxicity syndrome [Unknown]
  - Decreased appetite [Unknown]

NARRATIVE: CASE EVENT DATE: 20220303
